FAERS Safety Report 8130212-5 (Version None)
Quarter: 2012Q1

REPORT INFORMATION
  Report Type: 
  Country: None (occurrence: None)
  Receive Date: 20120210
  Receipt Date: 20120130
  Transmission Date: 20120608
  Serious: Yes (Other)
  Sender: FDA-Public Use
  Company Number: PHEH2012US002204

PATIENT
  Sex: Female
  Weight: 65.306 kg

DRUGS (2)
  1. DIOVAN HCT [Suspect]
     Indication: HYPERTENSION
     Dosage: 1 DF (160/12.5MG), DAILY
     Route: 048
     Dates: start: 20080602
  2. LEVOXYL [Concomitant]
     Indication: HYPOTHYROIDISM
     Dosage: 150 MG, UNK
     Route: 048
     Dates: start: 20080617

REACTIONS (1)
  - COELIAC DISEASE [None]
